FAERS Safety Report 8341788-7 (Version None)
Quarter: 2012Q2

REPORT INFORMATION
  Report Type: 
  Country: None (occurrence: None)
  Receive Date: 20120503
  Receipt Date: 20120418
  Transmission Date: 20120825
  Serious: Yes (Other)
  Sender: FDA-Public Use
  Company Number: JPI-P-021010

PATIENT
  Age: 50 Year
  Sex: Female
  Weight: 61.2356 kg

DRUGS (1)
  1. XYREM [Suspect]
     Indication: NARCOLEPSY
     Dosage: (UNKNOWN), ORAL, 5.7 GM (2.85 GM, 2 IN 1 D), ORAL
     Route: 048
     Dates: start: 20120328

REACTIONS (5)
  - HYPERTENSION [None]
  - VISION BLURRED [None]
  - INTRAOCULAR PRESSURE INCREASED [None]
  - COLOUR BLINDNESS [None]
  - EYE HAEMORRHAGE [None]
